FAERS Safety Report 8242199-5 (Version None)
Quarter: 2012Q1

REPORT INFORMATION
  Report Type: 
  Country: None (occurrence: None)
  Receive Date: 20120329
  Receipt Date: 20120320
  Transmission Date: 20120608
  Serious: Yes (Other)
  Sender: FDA-Public Use
  Company Number: SE-BAYER-2012-016013

PATIENT
  Age: 29 Year
  Sex: Female

DRUGS (1)
  1. MIRENA [Suspect]
     Indication: CONTRACEPTION
     Dosage: 20 ?G/D, UNK
     Route: 015
     Dates: start: 20110811, end: 20120109

REACTIONS (5)
  - VAGINAL HAEMORRHAGE [None]
  - CHLAMYDIAL INFECTION [None]
  - MENOMETRORRHAGIA [None]
  - MOOD ALTERED [None]
  - DYSMENORRHOEA [None]
